FAERS Safety Report 4721498-5 (Version None)
Quarter: 2005Q3

REPORT INFORMATION
  Report Type: 
  Country: None (occurrence: None)
  Receive Date: 20050721
  Receipt Date: 20041019
  Transmission Date: 20060218
  Serious: No
  Sender: FDA-Public Use
  Company Number: US-BRISTOL-MYERS SQUIBB COMPANY-12737227

PATIENT
  Age: 79 Year
  Sex: Female
  Weight: 52 kg

DRUGS (3)
  1. COUMADIN [Suspect]
     Indication: ATRIAL FIBRILLATION
     Dosage: 2.5 MG DAILY X 5 DAYS AND 5 MG DAILY X 2 DAYS= 22.5 PER WEEK; STOPPED 10/11-10/13 FOR 3 DAYS
     Route: 048
     Dates: start: 20040901
  2. MACROBID [Suspect]
     Indication: URINARY TRACT INFECTION BACTERIAL
  3. NORVASC [Concomitant]

REACTIONS (2)
  - INTERNATIONAL NORMALISED RATIO FLUCTUATION [None]
  - PROTHROMBIN LEVEL DECREASED [None]
